FAERS Safety Report 25818067 (Version 3)
Quarter: 2025Q4

REPORT INFORMATION
  Report Type: Spontaneous
  Country: EU (occurrence: EU)
  Receive Date: 20250918
  Receipt Date: 20251210
  Transmission Date: 20260118
  Serious: Yes (Other)
  Sender: PFIZER
  Company Number: EU-MYLANLABS-2025M1076634

PATIENT
  Age: 30 Year
  Sex: Male

DRUGS (8)
  1. LORAZEPAM [Interacting]
     Active Substance: LORAZEPAM
     Dosage: UNK
  2. CLOZAPINE [Interacting]
     Active Substance: CLOZAPINE
     Dosage: UNK
  3. FLUVOXAMINE [Interacting]
     Active Substance: FLUVOXAMINE
     Dosage: 3 DF, DAILY (1+0+2)
  4. HALOPERIDOL [Interacting]
     Active Substance: HALOPERIDOL
     Dosage: UNK
  5. RISPERIDONE [Suspect]
     Active Substance: RISPERIDONE
     Dosage: UNK
  6. OLANZAPINE [Suspect]
     Active Substance: OLANZAPINE
     Dosage: 1 DOSAGE FORM, PM (0+0+0+1)
  7. PALIPERIDONE [Suspect]
     Active Substance: PALIPERIDONE
     Dosage: UNK
  8. TOPIRAMATE [Suspect]
     Active Substance: TOPIRAMATE
     Dosage: 1 DOSAGE FORM, BID (1+0+1)

REACTIONS (2)
  - Drug interaction [Unknown]
  - Toxicity to various agents [Unknown]
